FAERS Safety Report 4743576-7 (Version None)
Quarter: 2005Q3

REPORT INFORMATION
  Report Type: 
  Country: None (occurrence: None)
  Receive Date: 20050810
  Receipt Date: 20050810
  Transmission Date: 20060218
  Serious: Yes (Hospitalization)
  Sender: FDA-Public Use
  Company Number: None

PATIENT
  Age: 82 Year
  Sex: Male
  Weight: 131.2 kg

DRUGS (13)
  1. SPIRONOLACTONE [Suspect]
     Indication: HYPERTENSION
     Dosage: 2.5MG PO Q DAY
     Route: 048
  2. LISINOPRIL [Suspect]
     Indication: HYPERTENSION
     Dosage: 10MG PO Q DAY
     Route: 048
  3. CLONAZEPAM [Concomitant]
  4. COUMADIN [Concomitant]
  5. CARVEDILOL [Concomitant]
  6. HYDRALAZINE [Concomitant]
  7. ALLOPURINOL [Concomitant]
  8. VITAMIN E [Concomitant]
  9. PREDNISONE [Concomitant]
  10. PROPOXYPHENE HCL [Concomitant]
  11. HYDROCODONE BITARTRATE + ACETAMINOPHEN [Concomitant]
  12. CITRACEL [Concomitant]
  13. FLUNISOLIDE [Concomitant]

REACTIONS (8)
  - BLOOD PRESSURE DECREASED [None]
  - DYSPNOEA EXERTIONAL [None]
  - ELECTROCARDIOGRAM T WAVE PEAKED [None]
  - FATIGUE [None]
  - HYDRONEPHROSIS [None]
  - HYPERKALAEMIA [None]
  - OEDEMA PERIPHERAL [None]
  - RENAL FAILURE ACUTE [None]
